FAERS Safety Report 12336730 (Version 1)
Quarter: 2016Q2

REPORT INFORMATION
  Report Type: Spontaneous
  Country: US (occurrence: None)
  Receive Date: 20160504
  Receipt Date: 20160504
  Transmission Date: 20160815
  Serious: No
  Sender: FDA-Public Use
  Company Number: None

PATIENT
  Age: 60 Year
  Sex: Female

DRUGS (8)
  1. XELJANZ [Suspect]
     Active Substance: TOFACITINIB CITRATE
     Indication: RHEUMATOID ARTHRITIS
     Route: 048
  2. OYSCO [Concomitant]
  3. NAPROXNE [Concomitant]
  4. PRESNISONE [Concomitant]
  5. HYDROCHLOROT [Concomitant]
     Active Substance: HYDROCHLOROTHIAZIDE
  6. ALBUTEROL. [Concomitant]
     Active Substance: ALBUTEROL
  7. CLARITIN [Concomitant]
     Active Substance: LORATADINE
  8. OXYBUTYNIN [Concomitant]
     Active Substance: OXYBUTYNIN

REACTIONS (2)
  - Rheumatoid arthritis [None]
  - Drug dose omission [None]

NARRATIVE: CASE EVENT DATE: 20160428
